FAERS Safety Report 26073945 (Version 3)
Quarter: 2025Q4

REPORT INFORMATION
  Report Type: Report from Study
  Country: US (occurrence: US)
  Receive Date: 20251121
  Receipt Date: 20251229
  Transmission Date: 20260118
  Serious: No
  Sender: SANDOZ
  Company Number: US-SANDOZ-SDZ2025US086525

PATIENT
  Age: 15 Year
  Sex: Male

DRUGS (1)
  1. OMNITROPE [Suspect]
     Active Substance: SOMATROPIN
     Indication: Short stature
     Dosage: 1.8 MG, QD, STRENGTH-10 MG / 1.5 ML
     Dates: start: 20250228

REACTIONS (3)
  - Injection site pain [Unknown]
  - Product complaint [Unknown]
  - Patient dissatisfaction with device [Unknown]

NARRATIVE: CASE EVENT DATE: 20251114
